FAERS Safety Report 10563483 (Version 1)
Quarter: 2014Q4

REPORT INFORMATION
  Report Type: Spontaneous
  Country: IL (occurrence: IL)
  Receive Date: 20141104
  Receipt Date: 20141104
  Transmission Date: 20150529
  Serious: Yes (Other)
  Sender: FDA-Public Use
  Company Number: IL-BAYER-2014-159510

PATIENT
  Sex: Female

DRUGS (1)
  1. BETAFERON [Suspect]
     Active Substance: INTERFERON BETA-1B
     Indication: MULTIPLE SCLEROSIS
     Dosage: UNK

REACTIONS (10)
  - Photosensitivity reaction [None]
  - Alopecia [None]
  - Multiple sclerosis [None]
  - Liver disorder [None]
  - Mass [Recovering/Resolving]
  - Injection site reaction [None]
  - Rash vesicular [Recovering/Resolving]
  - Drug ineffective [None]
  - Nausea [None]
  - Contusion [Recovering/Resolving]
